FAERS Safety Report 15109252 (Version 1)
Quarter: 2018Q3

REPORT INFORMATION
  Report Type: Spontaneous
  Country: IT (occurrence: IT)
  Receive Date: 20180705
  Receipt Date: 20180705
  Transmission Date: 20181010
  Serious: Yes (Other)
  Sender: FDA-Public Use
  Company Number: IT-TEVA-2018-IT-919804

PATIENT
  Age: 14 Year
  Sex: Female

DRUGS (3)
  1. XANAX [Suspect]
     Active Substance: ALPRAZOLAM
     Indication: PRODUCT USED FOR UNKNOWN INDICATION
     Dosage: 12 DF UNITS IN TOTAL
     Route: 048
     Dates: start: 20171016, end: 20171016
  2. HALDOL [Suspect]
     Active Substance: HALOPERIDOL
     Indication: PRODUCT USED FOR UNKNOWN INDICATION
     Dosage: 15 ML IN TOTAL
     Route: 048
     Dates: start: 20171016, end: 20171016
  3. ESCITALOPRAM [Suspect]
     Active Substance: ESCITALOPRAM OXALATE
     Indication: PRODUCT USED FOR UNKNOWN INDICATION
     Dosage: 10 DF UNITS IN TOTAL
     Route: 048
     Dates: start: 20171016, end: 20171016

REACTIONS (4)
  - Poisoning deliberate [Unknown]
  - Sopor [Unknown]
  - Bradyphrenia [Unknown]
  - Overdose [Unknown]

NARRATIVE: CASE EVENT DATE: 20171016
